FAERS Safety Report 9219898 (Version 2)
Quarter: 2013Q2

REPORT INFORMATION
  Report Type: Spontaneous
  Country: AU (occurrence: AU)
  Receive Date: 20130409
  Receipt Date: 20130521
  Transmission Date: 20140414
  Serious: Yes (Death)
  Sender: FDA-Public Use
  Company Number: AU-B.I. PHARMACEUTICALS,INC./RIDGEFIELD-2013-AU-00421AU

PATIENT
  Age: 85 Year
  Sex: Female
  Weight: 70 kg

DRUGS (6)
  1. PRADAXA [Suspect]
     Indication: CEREBROVASCULAR ACCIDENT PROPHYLAXIS
     Dosage: 220 MG
     Dates: start: 20110808
  2. PRADAXA [Suspect]
     Indication: ATRIAL FIBRILLATION
  3. AMIODARONE [Concomitant]
     Dosage: 600 MG
     Dates: start: 201206
  4. KARVEA [Concomitant]
     Dosage: 300 MG
     Dates: start: 2005
  5. UREX [Concomitant]
     Dosage: 40 MG
     Dates: start: 2011
  6. PROTON PUMP INHIBITOR [Concomitant]

REACTIONS (2)
  - Gallbladder cancer [Fatal]
  - Hypovolaemia [Unknown]
